FAERS Safety Report 13554543 (Version 3)
Quarter: 2017Q2

REPORT INFORMATION
  Report Type: Report from Study
  Country: CO (occurrence: CO)
  Receive Date: 20170517
  Receipt Date: 20170613
  Transmission Date: 20170830
  Serious: Yes (Death, Hospitalization)
  Sender: FDA-Public Use
  Company Number: PHHY2017CO065665

PATIENT
  Sex: Male

DRUGS (1)
  1. ENTRESTO [Suspect]
     Active Substance: SACUBITRIL\VALSARTAN
     Indication: CARDIAC FAILURE
     Dosage: 50 MG, Q12H
     Route: 048
     Dates: start: 20170217, end: 20170426

REACTIONS (5)
  - Speech disorder [Fatal]
  - Pulmonary mass [Fatal]
  - Hypoxia [Fatal]
  - Lung neoplasm malignant [Fatal]
  - Pleural effusion [Fatal]
